FAERS Safety Report 17789293 (Version 2)
Quarter: 2020Q2

REPORT INFORMATION
  Report Type: Spontaneous
  Country: FR (occurrence: FR)
  Receive Date: 20200515
  Receipt Date: 20200519
  Transmission Date: 20200714
  Serious: Yes (Congenital Anomaly)
  Sender: FDA-Public Use
  Company Number: FR-UCBSA-2020018444

PATIENT
  Age: 0 Year
  Sex: Male
  Weight: 2.75 kg

DRUGS (2)
  1. KEPPRA [Suspect]
     Active Substance: LEVETIRACETAM
     Indication: JUVENILE MYOCLONIC EPILEPSY
     Dosage: 1000 MG, DAILY
     Route: 064
     Dates: start: 20190804, end: 20200419
  2. LAMICTAL [Suspect]
     Active Substance: LAMOTRIGINE
     Indication: JUVENILE MYOCLONIC EPILEPSY
     Dosage: 300 MG, DAILY
     Route: 064
     Dates: start: 20190804, end: 20200419

REACTIONS (3)
  - Maternal exposure during pregnancy [Unknown]
  - Foetal malnutrition [Not Recovered/Not Resolved]
  - Polydactyly [Not Recovered/Not Resolved]

NARRATIVE: CASE EVENT DATE: 201908
